FAERS Safety Report 9208674 (Version 1)
Quarter: 2013Q2

REPORT INFORMATION
  Report Type: Spontaneous
  Country: US (occurrence: None)
  Receive Date: 20130402
  Receipt Date: 20130402
  Transmission Date: 20140414
  Serious: Yes (Other)
  Sender: FDA-Public Use
  Company Number: None

PATIENT
  Age: 41 Year
  Sex: Female

DRUGS (9)
  1. ZELBORAF 240 MG, GENENGTECH [Suspect]
     Indication: MALIGNANT MELANOMA
     Route: 048
     Dates: start: 20130307
  2. PROMETHAZINE [Concomitant]
  3. CEPHALEXIN [Concomitant]
  4. HYDROCODONE/ACETAMINOPHEN [Concomitant]
  5. OXYCODONE [Concomitant]
  6. NORCO [Concomitant]
  7. PERMETHRIN 5% CREAM [Concomitant]
  8. ZELBORAF [Concomitant]
  9. IBUPROFEN [Concomitant]

REACTIONS (2)
  - Chills [None]
  - Hot flush [None]
